FAERS Safety Report 4974532-1 (Version None)
Quarter: 2006Q1

REPORT INFORMATION
  Report Type: 
  Country: None (occurrence: None)
  Receive Date: 20060216
  Receipt Date: 20051027
  Transmission Date: 20060701
  Serious: No
  Sender: FDA-Public Use
  Company Number: TPA2005A01357

PATIENT
  Sex: Female

DRUGS (2)
  1. ROZEREM [Suspect]
     Dosage: 8 MG, QHS, PER ORAL
     Route: 048
  2. AMBIEN [Suspect]
     Indication: INSOMNIA
     Dosage: 5 MG, HS, PER ORAL
     Route: 048

REACTIONS (1)
  - HALLUCINATION, VISUAL [None]
